FAERS Safety Report 8208167-4 (Version None)
Quarter: 2012Q1

REPORT INFORMATION
  Report Type: 
  Country: None (occurrence: None)
  Receive Date: 20120314
  Receipt Date: 20120307
  Transmission Date: 20120608
  Serious: Yes (Other)
  Sender: FDA-Public Use
  Company Number: PHHY2012CA020552

PATIENT

DRUGS (1)
  1. ZOLEDRONIC ACID [Suspect]
     Indication: PROSTATE CANCER

REACTIONS (1)
  - OSTEONECROSIS OF JAW [None]
